FAERS Safety Report 7346155-0 (Version None)
Quarter: 2011Q1

REPORT INFORMATION
  Report Type: 
  Country: None (occurrence: None)
  Receive Date: 20110311
  Receipt Date: 20110228
  Transmission Date: 20110831
  Serious: Yes (Other)
  Sender: FDA-Public Use
  Company Number: PHHY2011AR17018

PATIENT
  Sex: Female

DRUGS (1)
  1. ACLASTA [Suspect]
     Indication: BONE DISORDER
     Dosage: 1 AMPOULE ANNUALLY
     Dates: start: 20100101

REACTIONS (3)
  - URINE OUTPUT INCREASED [None]
  - DYSURIA [None]
  - GENITAL INJURY [None]
